FAERS Safety Report 16577778 (Version 1)
Quarter: 2019Q3

REPORT INFORMATION
  Report Type: Spontaneous
  Country: US (occurrence: US)
  Receive Date: 20190716
  Receipt Date: 20190716
  Transmission Date: 20191004
  Serious: No
  Sender: FDA-Public Use
  Company Number: US-APOTEX-2019AP017145

PATIENT
  Age: 76 Year
  Sex: Female

DRUGS (3)
  1. QUETIAPINE. [Suspect]
     Active Substance: QUETIAPINE
     Indication: PRODUCT USED FOR UNKNOWN INDICATION
     Dosage: 25 MG, UNK
     Route: 065
  2. ARIPIPRAZOLE. [Concomitant]
     Active Substance: ARIPIPRAZOLE
     Indication: FRONTOTEMPORAL DEMENTIA
     Dosage: 5 MG, UNK (DAILY)
     Route: 065
  3. CITALOPRAM [Suspect]
     Active Substance: CITALOPRAM HYDROBROMIDE
     Indication: FRONTOTEMPORAL DEMENTIA
     Dosage: 20 MG, UNK (DAILY)
     Route: 065

REACTIONS (2)
  - Alopecia [Recovering/Resolving]
  - Drug ineffective [Unknown]
